FAERS Safety Report 5680210-6 (Version None)
Quarter: 2008Q1

REPORT INFORMATION
  Report Type: 
  Country: None (occurrence: None)
  Receive Date: 20080326
  Receipt Date: 20080324
  Transmission Date: 20080703
  Serious: Yes (Death)
  Sender: FDA-Public Use
  Company Number: PHEH2008US02904

PATIENT
  Age: 54 Year
  Sex: Male
  Weight: 113.38 kg

DRUGS (5)
  1. OXCARBAZEPINE [Suspect]
     Indication: CONVULSION
     Dosage: 600 MG, BID
     Route: 048
     Dates: start: 20070801
  2. LAMICTAL [Concomitant]
  3. LEXAPRO [Concomitant]
  4. ACETYLSALICYLATE [Concomitant]
  5. ALLOPURINOL [Concomitant]

REACTIONS (2)
  - ANTICONVULSANT DRUG LEVEL DECREASED [None]
  - SUDDEN UNEXPLAINED DEATH IN EPILEPSY [None]
